FAERS Safety Report 11240708 (Version 2)
Quarter: 2016Q4

REPORT INFORMATION
  Report Type: Spontaneous
  Country: US (occurrence: US)
  Receive Date: 20150706
  Receipt Date: 20161026
  Transmission Date: 20170206
  Serious: No
  Sender: FDA-Public Use
  Company Number: US-PFIZER INC-2015220921

PATIENT
  Age: 62 Year
  Sex: Male
  Weight: 138 kg

DRUGS (19)
  1. CELECOXIB. [Concomitant]
     Active Substance: CELECOXIB
     Dosage: 200 MG, UNK
     Route: 048
  2. GABAPENTINE [Concomitant]
     Active Substance: GABAPENTIN
     Dosage: 300 MG, 3X/DAY
     Route: 048
  3. METOLAZONE. [Concomitant]
     Active Substance: METOLAZONE
     Dosage: 5 MG, DAILY
     Route: 048
  4. POTASSIUM CHLORIDE. [Concomitant]
     Active Substance: POTASSIUM CHLORIDE
     Dosage: 20 MEQ, 2X/DAY (ER PARTICLE/ CRYSTALS 20 MEQ)
     Route: 048
  5. PRAVACHOL [Concomitant]
     Active Substance: PRAVASTATIN SODIUM
     Indication: BLOOD CHOLESTEROL INCREASED
     Dosage: 40 MG, 1X/DAY, (1 TABLET(S) BEDTIME)
     Route: 048
  6. HYDROCODONE/ACETAMINOPHEN [Concomitant]
     Active Substance: ACETAMINOPHEN\HYDROCODONE
     Dosage: 1 DF, AS NEEDED, (HYDROCODONE: 7.5 MG, PARACETAMOL: 325 MG)
     Route: 048
  7. LEVOCETIRIZINE [Concomitant]
     Active Substance: LEVOCETIRIZINE
     Indication: HYPERSENSITIVITY
     Dosage: 5 MG, 1X/DAY, (1 TAB(S) AT BEDTIME)
     Route: 048
  8. LIDOCAINE HCL HYDROCORTISONE ACETATE [Concomitant]
     Active Substance: HYDROCORTISONE ACETATE\LIDOCAINE HYDROCHLORIDE
     Dosage: UNK (HYDROCORTISONE ACETATE 2.5%, LIDOCAINE HYDROCHLORIDE 3%)
     Route: 054
  9. VALSARTAN. [Concomitant]
     Active Substance: VALSARTAN
     Dosage: 320 MG, DAILY
     Route: 048
  10. CELEBREX [Suspect]
     Active Substance: CELECOXIB
     Indication: PAIN
  11. FLUTICASONE [Concomitant]
     Active Substance: FLUTICASONE\FLUTICASONE PROPIONATE
     Dosage: UNK, AS NEEDED, (50 MCG/ACTUATION) (1 OR 2 SPRAY(S) EACH NOSTRIL DAILY AS NEEDED)
     Route: 045
  12. OMEPRAZOLE. [Concomitant]
     Active Substance: OMEPRAZOLE
     Dosage: 20 MG, DAILY
     Route: 048
  13. AZELASTINE [Concomitant]
     Active Substance: AZELASTINE
     Dosage: 2X/DAY, (2 SPRAY(S) EACH NOSTRIL, 137 MCG (0.1%)
     Route: 045
  14. CELEBREX [Suspect]
     Active Substance: CELECOXIB
     Indication: ARTHRITIS
     Dosage: 200 MG, 1X/DAY (200 MG CAPSULE ONE PER DAY)
     Route: 048
  15. AMLODIPINE [Concomitant]
     Active Substance: AMLODIPINE BESYLATE
     Dosage: 10 MG, DAILY
     Route: 048
  16. CYCLOBENZAPRINE [Concomitant]
     Active Substance: CYCLOBENZAPRINE
     Indication: MUSCLE SPASMS
     Dosage: 10 MG, AS NEEDED, (1 TABLET(S) 3 TIMES DAILY AS NEEDED)
     Route: 048
  17. METFORMIN [Concomitant]
     Active Substance: METFORMIN HYDROCHLORIDE
     Dosage: 1000 MG, 1X/DAY, (1 TABLET(S) BEFORE NOON)
     Route: 048
  18. FUROSEMIDE. [Concomitant]
     Active Substance: FUROSEMIDE
     Dosage: 40 MG, DAILY
     Route: 048
  19. LORATADINE. [Concomitant]
     Active Substance: LORATADINE
     Dosage: 10 MG, DAILY
     Route: 048

REACTIONS (2)
  - Malaise [Unknown]
  - Hypersensitivity [Unknown]

NARRATIVE: CASE EVENT DATE: 2015
